FAERS Safety Report 20245282 (Version 1)
Quarter: 2021Q4

REPORT INFORMATION
  Report Type: Spontaneous
  Country: AU (occurrence: AU)
  Receive Date: 20211229
  Receipt Date: 20211229
  Transmission Date: 20220303
  Serious: Yes (Hospitalization, Other)
  Sender: FDA-Public Use
  Company Number: AU-drreddys-LIT/AUS/21/0145350

PATIENT
  Age: 62 Year
  Sex: Male

DRUGS (2)
  1. SILDENAFIL [Suspect]
     Active Substance: SILDENAFIL
     Indication: Erectile dysfunction
  2. TADALAFIL [Suspect]
     Active Substance: TADALAFIL
     Indication: Erectile dysfunction
     Dosage: ALTERNATE DAILY DOSE OF 20MG

REACTIONS (4)
  - Insulin autoimmune syndrome [Recovered/Resolved]
  - Hypoglycaemia [Recovered/Resolved]
  - Intentional product misuse [Unknown]
  - Prescription drug used without a prescription [Unknown]
